FAERS Safety Report 15266425 (Version 1)
Quarter: 2018Q3

REPORT INFORMATION
  Report Type: Spontaneous
  Country: US (occurrence: US)
  Receive Date: 20180810
  Receipt Date: 20180810
  Transmission Date: 20181010
  Serious: No
  Sender: FDA-Public Use
  Company Number: US-TEVA-2018-US-941438

PATIENT
  Age: 46 Year
  Sex: Female
  Weight: 74.84 kg

DRUGS (5)
  1. MONTELUKAST [Suspect]
     Active Substance: MONTELUKAST SODIUM
     Indication: HYPERSENSITIVITY
     Route: 048
     Dates: start: 201804
  2. CRYSELLE [Suspect]
     Active Substance: ETHINYL ESTRADIOL\NORGESTREL
     Indication: CONTRACEPTION
     Dosage: DOSE STRENGTH: 0.3MG/0.03MG
     Route: 065
     Dates: start: 201807
  3. XELJANZ [Suspect]
     Active Substance: TOFACITINIB CITRATE
     Indication: RHEUMATOID ARTHRITIS
     Dosage: 10 MILLIGRAM DAILY;
     Route: 048
     Dates: start: 201802
  4. METFORMIN [Concomitant]
     Active Substance: METFORMIN HYDROCHLORIDE
     Route: 065
  5. ERGOCALCIFEROL. [Concomitant]
     Active Substance: ERGOCALCIFEROL
     Indication: SUPPLEMENTATION THERAPY
     Dosage: 7142.8571 IU (INTERNATIONAL UNIT) DAILY;
     Route: 048

REACTIONS (7)
  - Ovarian enlargement [Unknown]
  - Hepatic enzyme increased [Unknown]
  - Dizziness [Not Recovered/Not Resolved]
  - Vomiting [Unknown]
  - Uterine leiomyoma [Unknown]
  - Dyslexia [Unknown]
  - Cold sweat [Unknown]

NARRATIVE: CASE EVENT DATE: 201807
